FAERS Safety Report 6036449-3 (Version None)
Quarter: 2009Q1

REPORT INFORMATION
  Report Type: 
  Country: None (occurrence: None)
  Receive Date: 20090112
  Receipt Date: 20090108
  Transmission Date: 20090719
  Serious: Yes (Hospitalization)
  Sender: FDA-Public Use
  Company Number: A0762822A

PATIENT
  Age: 80 Year
  Sex: Male

DRUGS (4)
  1. CHLORPHENIRAMINE MALEATE + PARACETAMOL + PHENYLEPHRINE HCL ((CHLORPHEN [Suspect]
     Dates: start: 20081201
  2. LEVOTHYROXINE SODIUM [Concomitant]
  3. LOVASTATIN [Concomitant]
  4. ASPIRIN [Concomitant]

REACTIONS (2)
  - DRUG INEFFECTIVE [None]
  - PNEUMONIA [None]
